FAERS Safety Report 9733365 (Version 3)
Quarter: 2013Q4

REPORT INFORMATION
  Report Type: Report from Study
  Country: DE (occurrence: DE)
  Receive Date: 20131205
  Receipt Date: 20131213
  Transmission Date: 20140711
  Serious: Yes (Death, Other)
  Sender: FDA-Public Use
  Company Number: DE-ABBVIE-13P-062-1150829-00

PATIENT
  Age: 74 Year
  Sex: Male
  Weight: 65 kg

DRUGS (3)
  1. TRENANTONE [Suspect]
     Indication: PROSTATE CANCER METASTATIC
     Route: 058
     Dates: start: 20110825, end: 20130521
  2. CHEMOTHERAPEUTICS [Concomitant]
     Indication: PRODUCT USED FOR UNKNOWN INDICATION
     Dates: start: 20110825
  3. ZOLEDRONIC ACID [Concomitant]
     Indication: PRODUCT USED FOR UNKNOWN INDICATION
     Dates: start: 20130219

REACTIONS (4)
  - Prostate cancer [Fatal]
  - Diabetes mellitus [Unknown]
  - General physical health deterioration [Unknown]
  - Urinary retention [Unknown]
